FAERS Safety Report 8269615-7 (Version None)
Quarter: 2012Q2

REPORT INFORMATION
  Report Type: 
  Country: None (occurrence: None)
  Receive Date: 20120410
  Receipt Date: 20120330
  Transmission Date: 20120825
  Serious: Yes (Hospitalization, Other)
  Sender: FDA-Public Use
  Company Number: FR-BIOGENIDEC-2011BI044787

PATIENT
  Age: 50 Year
  Sex: Female

DRUGS (6)
  1. LIORESAL [Concomitant]
     Dates: start: 20060920
  2. LYRICA [Concomitant]
     Dates: start: 20070227
  3. TYSABRI [Suspect]
     Indication: MULTIPLE SCLEROSIS
     Route: 042
     Dates: start: 20070920
  4. LAMICTAL [Concomitant]
     Dates: start: 20050112
  5. CLONAZEPAM [Concomitant]
     Dates: start: 20050112
  6. IXEL [Concomitant]
     Dates: start: 20100427

REACTIONS (1)
  - BORDERLINE OVARIAN TUMOUR [None]
